FAERS Safety Report 10018640 (Version 2)
Quarter: 2014Q1

REPORT INFORMATION
  Report Type: Report from Study
  Country: FR (occurrence: FR)
  Receive Date: 20140318
  Receipt Date: 20140325
  Transmission Date: 20141002
  Serious: Yes (Hospitalization, Other)
  Sender: FDA-Public Use
  Company Number: FR-ASTELLAS-2014EU002041

PATIENT
  Age: 35 Year
  Sex: Female

DRUGS (11)
  1. TACROLIMUS [Suspect]
     Dosage: UNK
     Route: 065
  2. RAPAMUNE [Suspect]
     Indication: IMMUNOSUPPRESSANT DRUG THERAPY
     Dosage: 2 MG, UNKNOWN/D
     Route: 048
     Dates: start: 20100222, end: 20120314
  3. RAPAMUNE [Suspect]
     Indication: PROPHYLAXIS AGAINST TRANSPLANT REJECTION
  4. CELLCEPT /01275102/ [Suspect]
     Indication: IMMUNOSUPPRESSANT DRUG THERAPY
     Dosage: 250 MG, BID
     Route: 048
     Dates: start: 20091219, end: 20120325
  5. CELLCEPT /01275102/ [Suspect]
     Indication: PROPHYLAXIS AGAINST TRANSPLANT REJECTION
  6. APROVEL [Suspect]
     Dosage: UNK
     Route: 065
     Dates: end: 201203
  7. IMUREL /00001501/ [Suspect]
     Dosage: UNK
     Route: 065
  8. SECTRAL [Suspect]
     Dosage: UNK
     Route: 065
  9. OMEPRAZOLE [Concomitant]
     Dosage: UNK
     Route: 065
  10. CORTANCYL [Concomitant]
     Dosage: UNK
     Route: 065
  11. ASPEGIC                            /00002703/ [Concomitant]
     Dosage: UNK
     Route: 065

REACTIONS (3)
  - Maternal exposure during pregnancy [Unknown]
  - Caesarean section [Unknown]
  - Renal impairment [Unknown]
